FAERS Safety Report 16296263 (Version 2)
Quarter: 2020Q2

REPORT INFORMATION
  Report Type: Report from Study
  Country: AU (occurrence: AU)
  Receive Date: 20190510
  Receipt Date: 20200519
  Transmission Date: 20200713
  Serious: Yes (Other)
  Sender: FDA-Public Use
  Company Number: AU-JNJFOC-20190503627

PATIENT
  Weight: 100 kg

DRUGS (2)
  1. STELARA [Suspect]
     Active Substance: USTEKINUMAB
  2. STELARA [Suspect]
     Active Substance: USTEKINUMAB
     Indication: PSORIASIS
     Route: 058
     Dates: start: 20190124

REACTIONS (2)
  - Lower respiratory tract infection [Unknown]
  - Nasopharyngitis [Unknown]

NARRATIVE: CASE EVENT DATE: 2019
